FAERS Safety Report 15500550 (Version 4)
Quarter: 2019Q1

REPORT INFORMATION
  Report Type: Spontaneous
  Country: US (occurrence: US)
  Receive Date: 20181015
  Receipt Date: 20190218
  Transmission Date: 20190417
  Serious: No
  Sender: FDA-Public Use
  Company Number: US-PFIZER INC-2018409716

PATIENT
  Sex: Male

DRUGS (7)
  1. PENICILLIN V BASIC [Suspect]
     Active Substance: PENICILLIN V POTASSIUM
     Dosage: UNK
  2. KETOROLAC TROMETHAMINE. [Suspect]
     Active Substance: KETOROLAC TROMETHAMINE
     Dosage: UNK
  3. NAPROXEN SODIUM. [Suspect]
     Active Substance: NAPROXEN SODIUM
     Dosage: UNK
  4. LISINOPRIL. [Suspect]
     Active Substance: LISINOPRIL
     Dosage: UNK
  5. DULOXETINE HYDROCHLORIDE. [Suspect]
     Active Substance: DULOXETINE HYDROCHLORIDE
     Dosage: UNK
  6. LEVOFLOXACIN. [Suspect]
     Active Substance: LEVOFLOXACIN
     Dosage: UNK
  7. HALDOL [Suspect]
     Active Substance: HALOPERIDOL
     Dosage: UNK

REACTIONS (1)
  - Drug hypersensitivity [Unknown]
